FAERS Safety Report 14829941 (Version 1)
Quarter: 2018Q2

REPORT INFORMATION
  Report Type: Spontaneous
  Country: JP (occurrence: JP)
  Receive Date: 20180430
  Receipt Date: 20180430
  Transmission Date: 20180711
  Serious: Yes (Hospitalization)
  Sender: FDA-Public Use
  Company Number: JP-PFIZER INC-2018170719

PATIENT
  Age: 58 Year
  Sex: Male

DRUGS (12)
  1. TRERIEF [Concomitant]
     Active Substance: ZONISAMIDE
     Dosage: UNK
  2. TRAZODONE [Concomitant]
     Active Substance: TRAZODONE HYDROCHLORIDE
     Dosage: UNK
  3. MEROPENEM PFIZER [Suspect]
     Active Substance: MEROPENEM
     Indication: POST PROCEDURAL INFECTION
     Dosage: 1 G, 3X/DAY
     Route: 042
     Dates: start: 20180305, end: 20180312
  4. LANSOPRAZOLE. [Concomitant]
     Active Substance: LANSOPRAZOLE
     Dosage: UNK
  5. DOMPERIDONE [Concomitant]
     Active Substance: DOMPERIDONE
     Dosage: UNK
  6. CELECOX [Concomitant]
     Active Substance: CELECOXIB
     Dosage: UNK
  7. ROZEREM [Concomitant]
     Active Substance: RAMELTEON
     Dosage: UNK
  8. FLAVOXATE [Concomitant]
     Active Substance: FLAVOXATE
     Dosage: UNK
  9. LYRICA [Concomitant]
     Active Substance: PREGABALIN
     Dosage: UNK
  10. FERROUS SULFATE. [Concomitant]
     Active Substance: FERROUS SULFATE
     Dosage: UNK
  11. REQUIP [Concomitant]
     Active Substance: ROPINIROLE HYDROCHLORIDE
     Dosage: UNK
  12. TRIHEXYPHENIDYL HYDROCHLORIDE. [Concomitant]
     Active Substance: TRIHEXYPHENIDYL HYDROCHLORIDE
     Dosage: UNK

REACTIONS (1)
  - Platelet count increased [Recovered/Resolved]

NARRATIVE: CASE EVENT DATE: 20180306
